FAERS Safety Report 5729908-1 (Version None)
Quarter: 2008Q2

REPORT INFORMATION
  Report Type: 
  Country: None (occurrence: None)
  Receive Date: 20080502
  Receipt Date: 20080421
  Transmission Date: 20081010
  Serious: Yes (Hospitalization)
  Sender: FDA-Public Use
  Company Number: 23382108USA

PATIENT
  Age: 17 Year
  Sex: Female

DRUGS (1)
  1. REBIF [Suspect]
     Indication: OFF LABEL USE
     Dosage: 44 MCG, 3 IN 1 WEEKS, SUBCUTANEOUS
     Route: 058
     Dates: start: 20070913, end: 20080301

REACTIONS (5)
  - ABASIA [None]
  - HYPOAESTHESIA [None]
  - OFF LABEL USE [None]
  - PAIN IN EXTREMITY [None]
  - PARAESTHESIA [None]
